FAERS Safety Report 21727609 (Version 1)
Quarter: 2022Q4

REPORT INFORMATION
  Report Type: Spontaneous
  Country: US (occurrence: None)
  Receive Date: 20221213
  Receipt Date: 20221213
  Transmission Date: 20230113
  Serious: No
  Sender: FDA-Public Use
  Company Number: None

PATIENT
  Sex: Male

DRUGS (7)
  1. IMATINIB [Suspect]
     Active Substance: IMATINIB
     Dosage: OTHER FREQUENCY : EVERY MORNING;?
     Route: 048
     Dates: start: 20220324
  2. IMATINIB [Suspect]
     Active Substance: IMATINIB
     Dosage: OTHER FREQUENCY : EVERY MORNING;?
     Route: 048
  3. ATORVASTATIN [Concomitant]
     Active Substance: ATORVASTATIN
  4. ENTYVIO [Concomitant]
     Active Substance: VEDOLIZUMAB
  5. GLEEVEC [Concomitant]
     Active Substance: IMATINIB MESYLATE
  6. KEYTRUDA [Concomitant]
     Active Substance: PEMBROLIZUMAB
  7. MEMANTINE [Concomitant]
     Active Substance: MEMANTINE

REACTIONS (2)
  - Surgery [None]
  - Therapy cessation [None]
